FAERS Safety Report 22360986 (Version 1)
Quarter: 2023Q2

REPORT INFORMATION
  Report Type: Spontaneous
  Country: US (occurrence: US)
  Receive Date: 20230524
  Receipt Date: 20230524
  Transmission Date: 20230721
  Serious: Yes (Other)
  Sender: FDA-Public Use
  Company Number: US-BAYER-2023A070888

PATIENT
  Sex: Female

DRUGS (1)
  1. ASPIRIN [Suspect]
     Active Substance: ASPIRIN
     Dosage: 81 MG, QD

REACTIONS (3)
  - Subdural haematoma [None]
  - Seizure [None]
  - Cognitive disorder [None]
